FAERS Safety Report 9932576 (Version 1)
Quarter: 2014Q1

REPORT INFORMATION
  Report Type: Spontaneous
  Country: US (occurrence: US)
  Receive Date: 20140228
  Receipt Date: 20140228
  Transmission Date: 20141002
  Serious: No
  Sender: FDA-Public Use
  Company Number: US-GLAXOSMITHKLINE-A1010819A

PATIENT
  Age: 63 Year
  Sex: Female

DRUGS (2)
  1. SUMATRIPTAN [Suspect]
     Indication: MIGRAINE
     Route: 065
  2. TREXIMET [Concomitant]
     Indication: MIGRAINE

REACTIONS (2)
  - Drug ineffective [Unknown]
  - Therapeutic response delayed [Unknown]
